FAERS Safety Report 10420099 (Version 1)
Quarter: 2014Q1

REPORT INFORMATION
  Report Type: Spontaneous
  Country: US (occurrence: None)
  Receive Date: 20130815
  Receipt Date: 20130815
  Transmission Date: 20141002
  Serious: Yes (Other)
  Sender: FDA-Public Use
  Company Number: ADR-2012-01398

PATIENT
  Sex: Male

DRUGS (1)
  1. LIORESAL INTRATHECAL (BACLOFEN INJECTION) 2000 MCG/GM [Suspect]
     Indication: MUSCLE SPASTICITY
     Dosage: 946 MCG/DAY FLEX

REACTIONS (1)
  - Drug withdrawal syndrome [None]
